FAERS Safety Report 8419270-8 (Version None)
Quarter: 2012Q2

REPORT INFORMATION
  Report Type: 
  Country: None (occurrence: None)
  Receive Date: 20120607
  Receipt Date: 20120601
  Transmission Date: 20120825
  Serious: Yes (Other)
  Sender: FDA-Public Use
  Company Number: GB-ROCHE-1063796

PATIENT
  Sex: Female
  Weight: 67 kg

DRUGS (2)
  1. VINCRISTINE [Suspect]
     Indication: CHEMOTHERAPY
     Dosage: 21/7
     Route: 042
     Dates: start: 20100713, end: 20101123
  2. RITUXIMAB [Suspect]
     Indication: B-CELL LYMPHOMA
     Dosage: 2/12 FREQUENCY
     Route: 042
     Dates: start: 20100713

REACTIONS (1)
  - COLITIS ISCHAEMIC [None]
